FAERS Safety Report 20332596 (Version 1)
Quarter: 2022Q1

REPORT INFORMATION
  Report Type: Spontaneous
  Country: US (occurrence: US)
  Receive Date: 20220113
  Receipt Date: 20220113
  Transmission Date: 20220423
  Serious: Yes (Other)
  Sender: FDA-Public Use
  Company Number: US-GLENMARK PHARMACEUTICALS-2022GMK069711

PATIENT
  Age: 51 Year
  Sex: Male

DRUGS (2)
  1. FLUTICASONE PROPIONATE [Interacting]
     Active Substance: FLUTICASONE PROPIONATE
     Indication: Sinusitis
     Dosage: UNK, FORMULATION: INTRANASAL SPRAY
     Route: 045
  2. RITONAVIR [Interacting]
     Active Substance: RITONAVIR
     Indication: HIV infection
     Dosage: UNK
     Route: 065

REACTIONS (3)
  - Osteonecrosis [Unknown]
  - Drug interaction [Unknown]
  - Cushing^s syndrome [Unknown]
